FAERS Safety Report 9277122 (Version 2)
Quarter: 2013Q2

REPORT INFORMATION
  Report Type: Spontaneous
  Country: US (occurrence: US)
  Receive Date: 20130507
  Receipt Date: 20130528
  Transmission Date: 20140414
  Serious: No
  Sender: FDA-Public Use
  Company Number: US-B.I. PHARMACEUTICALS,INC./RIDGEFIELD-2013-BI-12647BP

PATIENT
  Age: 77 Year
  Sex: Male
  Weight: 113 kg

DRUGS (5)
  1. PRADAXA [Suspect]
     Indication: ATRIAL FIBRILLATION
     Dosage: 300 MG
     Route: 048
     Dates: start: 20121227
  2. LIPITOR [Concomitant]
     Indication: HYPERCHOLESTEROLAEMIA
  3. FORADIL [Concomitant]
     Indication: SEASONAL ALLERGY
  4. NIACIN [Concomitant]
     Indication: BLOOD CHOLESTEROL
  5. SINGULAIR [Concomitant]
     Indication: SEASONAL ALLERGY

REACTIONS (2)
  - Vertigo [Not Recovered/Not Resolved]
  - Dizziness [Not Recovered/Not Resolved]
